FAERS Safety Report 16141753 (Version 6)
Quarter: 2020Q1

REPORT INFORMATION
  Report Type: Spontaneous
  Country: US (occurrence: US)
  Receive Date: 20190401
  Receipt Date: 20200108
  Transmission Date: 20200409
  Serious: Yes (Other)
  Sender: FDA-Public Use
  Company Number: US-PFIZER INC-2019134291

PATIENT
  Age: 71 Year
  Sex: Female

DRUGS (1)
  1. IBRANCE [Suspect]
     Active Substance: PALBOCICLIB
     Indication: BREAST CANCER METASTATIC
     Dosage: 100 MG, UNK

REACTIONS (6)
  - Full blood count decreased [Unknown]
  - Fatigue [Unknown]
  - Spinal fracture [Unknown]
  - Dyspnoea [Unknown]
  - Visual impairment [Unknown]
  - Vision blurred [Unknown]
